FAERS Safety Report 4279045-0 (Version None)
Quarter: 2004Q1

REPORT INFORMATION
  Report Type: 
  Country: None (occurrence: None)
  Receive Date: 20040122
  Receipt Date: 20040109
  Transmission Date: 20041129
  Serious: Yes (Other)
  Sender: FDA-Public Use
  Company Number: 2003117881

PATIENT
  Age: 81 Year
  Sex: Female
  Weight: 58.5 kg

DRUGS (5)
  1. DILANTIN KAPSEAL [Suspect]
     Indication: BRAIN NEOPLASM
     Dosage: 200 MG (DAILY), ORAL
     Route: 048
     Dates: start: 20030601
  2. DILANTIN KAPSEAL [Suspect]
     Indication: CEREBROVASCULAR ACCIDENT
     Dosage: 200 MG (DAILY), ORAL
     Route: 048
     Dates: start: 20030601
  3. DEXAMETHASONE [Suspect]
     Indication: BRAIN NEOPLASM
     Dosage: 4 MG (BID), ORAL
     Route: 048
     Dates: start: 20030601, end: 20030901
  4. DEXAMETHASONE [Suspect]
     Indication: CEREBROVASCULAR ACCIDENT
     Dosage: 4 MG (BID), ORAL
     Route: 048
     Dates: start: 20030601, end: 20030901
  5. PARACETAMOL (PARACETAMOL) [Concomitant]

REACTIONS (5)
  - AMNESIA [None]
  - HEADACHE [None]
  - NUCLEAR MAGNETIC RESONANCE IMAGING BRAIN ABNORMAL [None]
  - OEDEMA PERIPHERAL [None]
  - SWELLING FACE [None]
